FAERS Safety Report 24318826 (Version 1)
Quarter: 2024Q3

REPORT INFORMATION
  Report Type: Spontaneous
  Country: JP (occurrence: JP)
  Receive Date: 20240913
  Receipt Date: 20240913
  Transmission Date: 20241017
  Serious: Yes (Hospitalization, Other)
  Sender: BRISTOL MYERS SQUIBB
  Company Number: JP-TAIHO-2024-007454

PATIENT
  Age: 7 Decade
  Sex: Male

DRUGS (11)
  1. ABRAXANE [Suspect]
     Active Substance: PACLITAXEL
     Indication: Pancreatic carcinoma metastatic
     Dosage: DETAILS NOT REPORTED?DAILY DOSE: 125 MILLIGRAM(S)/SQ. METER
     Route: 041
     Dates: start: 20221221, end: 20230413
  2. GEMCITABINE HYDROCHLORIDE [Suspect]
     Active Substance: GEMCITABINE HYDROCHLORIDE
     Indication: Pancreatic carcinoma metastatic
     Dosage: DETAILS NOT REPORTED, CYCLE 1?DAILY DOSE: 1000 MILLIGRAM(S)/SQ. METER
     Dates: start: 20221221
  3. GEMCITABINE HYDROCHLORIDE [Suspect]
     Active Substance: GEMCITABINE HYDROCHLORIDE
     Dosage: DETAILS NOT REPORTED, FROM CYCLE 2?DAILY DOSE: 800 MILLIGRAM(S)/SQ. METER
     Dates: end: 20230413
  4. UNSPECIFIED INGREDIENT [Suspect]
     Active Substance: UNSPECIFIED INGREDIENT
     Indication: Product used for unknown indication
     Dosage: ON DAY 1, CYCLES 1
     Route: 042
     Dates: start: 20221221
  5. UNSPECIFIED INGREDIENT [Suspect]
     Active Substance: UNSPECIFIED INGREDIENT
     Dosage: ON DAYS 2-3 IN CYCLES 1-2, ON DAYS 1-4 FROM CYCLE 3
     Route: 048
     Dates: start: 20221222, end: 20221223
  6. UNSPECIFIED INGREDIENT [Suspect]
     Active Substance: UNSPECIFIED INGREDIENT
     Dosage: CYCLE 2
     Route: 042
  7. UNSPECIFIED INGREDIENT [Suspect]
     Active Substance: UNSPECIFIED INGREDIENT
     Dosage: CYCLE 2, DAYS 2-3
     Route: 048
  8. UNSPECIFIED INGREDIENT [Suspect]
     Active Substance: UNSPECIFIED INGREDIENT
     Dosage: UNTIL DAY 4 FROM 3RD CYCLE
     Route: 048
  9. UNSPECIFIED INGREDIENT [Suspect]
     Active Substance: UNSPECIFIED INGREDIENT
     Dosage: FROM CYCLE 5
     Route: 048
  10. POLARAMINE [Concomitant]
     Active Substance: DEXCHLORPHENIRAMINE MALEATE
     Indication: Prophylaxis
     Dosage: NI
  11. FEXOFENADINE HYDROCHLORIDE [Concomitant]
     Active Substance: FEXOFENADINE HYDROCHLORIDE
     Indication: Prophylaxis
     Dosage: NI

REACTIONS (8)
  - Interstitial lung disease [Recovered/Resolved]
  - C-reactive protein increased [Unknown]
  - Pyrexia [Recovered/Resolved]
  - Platelet count decreased [Unknown]
  - Hypoaesthesia [Unknown]
  - Off label use [Unknown]
  - Compression fracture [Unknown]
  - Lumbar spinal stenosis [Unknown]

NARRATIVE: CASE EVENT DATE: 20221228
